FAERS Safety Report 6670776-1 (Version None)
Quarter: 2010Q2

REPORT INFORMATION
  Report Type: 
  Country: None (occurrence: None)
  Receive Date: 20100407
  Receipt Date: 20100331
  Transmission Date: 20101027
  Serious: Yes (Hospitalization)
  Sender: FDA-Public Use
  Company Number: PHHO2010DE04943

PATIENT
  Sex: Female

DRUGS (4)
  1. CGS 20267 T30748+TAB [Suspect]
     Indication: BREAST CANCER
     Dosage: 2.5 MG, QD
     Route: 048
     Dates: end: 20100330
  2. SPASMEX [Concomitant]
  3. BISOHEXAL [Concomitant]
     Indication: HYPERTONIA
  4. BIOTIN [Concomitant]
     Indication: PROPHYLAXIS

REACTIONS (1)
  - PULMONARY EMBOLISM [None]
